FAERS Safety Report 7230691-1 (Version None)
Quarter: 2011Q1

REPORT INFORMATION
  Report Type: 
  Country: None (occurrence: None)
  Receive Date: 20110118
  Receipt Date: 20110112
  Transmission Date: 20110831
  Serious: No
  Sender: FDA-Public Use
  Company Number: US-PFIZER INC-2011008368

PATIENT
  Sex: Female
  Weight: 78.91 kg

DRUGS (1)
  1. PRISTIQ [Suspect]
     Indication: DEPRESSION
     Dosage: 50 MG, 1X/DAY
     Route: 048
     Dates: start: 20101201

REACTIONS (4)
  - INSOMNIA [None]
  - HYPERHIDROSIS [None]
  - DIZZINESS [None]
  - WEIGHT DECREASED [None]
